FAERS Safety Report 13939276 (Version 1)
Quarter: 2017Q3

REPORT INFORMATION
  Report Type: Spontaneous
  Country: US (occurrence: US)
  Receive Date: 20170906
  Receipt Date: 20170906
  Transmission Date: 20171127
  Serious: No
  Sender: FDA-Public Use
  Company Number: US-ZYDUS-012750

PATIENT
  Age: 12 Year
  Sex: Male

DRUGS (3)
  1. SALBUTAMOL [Concomitant]
     Active Substance: ALBUTEROL
     Indication: THROAT TIGHTNESS
  2. MELOXICAM. [Suspect]
     Active Substance: MELOXICAM
     Indication: RAYNAUD^S PHENOMENON
     Dates: start: 20161105, end: 20161108
  3. BUDESONIDE. [Concomitant]
     Active Substance: BUDESONIDE
     Indication: THROAT TIGHTNESS

REACTIONS (5)
  - Vision blurred [Recovered/Resolved]
  - Fall [Recovered/Resolved]
  - Feeling abnormal [Recovered/Resolved]
  - Muscle twitching [Recovered/Resolved]
  - Blindness [Recovered/Resolved]

NARRATIVE: CASE EVENT DATE: 20161108
